FAERS Safety Report 8018158-4 (Version None)
Quarter: 2011Q4

REPORT INFORMATION
  Report Type: 
  Country: None (occurrence: None)
  Receive Date: 20111227
  Receipt Date: 20111218
  Transmission Date: 20120403
  Serious: Yes (Death)
  Sender: FDA-Public Use
  Company Number: 2011ST000561

PATIENT
  Age: 34 Year
  Sex: Female
  Weight: 52 kg

DRUGS (12)
  1. ZANTAC [Concomitant]
  2. PREMARIN [Concomitant]
  3. TARGOCID [Concomitant]
  4. ZOVIRAX /00587301/ [Concomitant]
  5. PROSTINE [Concomitant]
  6. CIPROXIN /00697201/ [Concomitant]
  7. LEUCOVORIN CALCIUM [Concomitant]
  8. MAXIPIME [Concomitant]
  9. ABELCET [Suspect]
     Indication: ASPERGILLOSIS
     Dosage: 280 MG;X1;IV, 280 MG;X1;IV
     Route: 042
     Dates: start: 20000814, end: 20000814
  10. ABELCET [Suspect]
     Indication: ASPERGILLOSIS
     Dosage: 280 MG;X1;IV, 280 MG;X1;IV
     Route: 042
     Dates: start: 20000821, end: 20000821
  11. ORGAMETRIL [Concomitant]
  12. ALLOPURINOL [Concomitant]

REACTIONS (7)
  - CEREBRAL ASPERGILLOSIS [None]
  - TACHYCARDIA [None]
  - BRONCHOPULMONARY ASPERGILLOSIS [None]
  - CHILLS [None]
  - MULTI-ORGAN FAILURE [None]
  - TACHYPNOEA [None]
  - PYREXIA [None]
